FAERS Safety Report 22264033 (Version 2)
Quarter: 2024Q3

REPORT INFORMATION
  Report Type: Spontaneous
  Country: JP (occurrence: JP)
  Receive Date: 20230428
  Receipt Date: 20240718
  Transmission Date: 20241017
  Serious: No
  Sender: MYOVANT SCIENCES
  Company Number: JP-MYOVANT SCIENCES GMBH-2023MYSCI0400582

PATIENT
  Age: 24 Year
  Sex: Female
  Weight: 39 kg

DRUGS (1)
  1. RELUGOLIX [Suspect]
     Active Substance: RELUGOLIX
     Indication: Adenomyosis
     Dosage: UNK
     Route: 048
     Dates: start: 202102

REACTIONS (1)
  - Off label use [Unknown]
